FAERS Safety Report 4394772-2 (Version None)
Quarter: 2004Q3

REPORT INFORMATION
  Report Type: 
  Country: None (occurrence: None)
  Receive Date: 20040707
  Receipt Date: 20040624
  Transmission Date: 20050211
  Serious: No
  Sender: FDA-Public Use
  Company Number: 2004-06-1612

PATIENT
  Age: 36 Year
  Sex: Female

DRUGS (1)
  1. CLARITIN [Suspect]
     Indication: RHINITIS ALLERGIC
     Dosage: 10MG DAILY ORAL
     Route: 048
     Dates: start: 20040601, end: 20040601

REACTIONS (2)
  - DISEASE RECURRENCE [None]
  - RETINAL DETACHMENT [None]
